FAERS Safety Report 7084943-9 (Version None)
Quarter: 2010Q4

REPORT INFORMATION
  Report Type: 
  Country: None (occurrence: None)
  Receive Date: 20101105
  Receipt Date: 20100525
  Transmission Date: 20110411
  Serious: Yes (Hospitalization, Other)
  Sender: FDA-Public Use
  Company Number: US-BAYER-201015106NA

PATIENT
  Age: 19 Year
  Sex: Female
  Weight: 66 kg

DRUGS (4)
  1. YAZ [Suspect]
     Indication: PREMENSTRUAL SYNDROME
     Route: 048
     Dates: start: 20051101, end: 20070301
  2. YAZ [Suspect]
     Route: 048
  3. RECLIPSIN [Concomitant]
  4. XANAX [Concomitant]
     Indication: ANXIETY

REACTIONS (3)
  - DEEP VEIN THROMBOSIS [None]
  - OEDEMA PERIPHERAL [None]
  - PAIN IN EXTREMITY [None]
